FAERS Safety Report 20524195 (Version 1)
Quarter: 2022Q1

REPORT INFORMATION
  Report Type: Spontaneous
  Country: US (occurrence: US)
  Receive Date: 20220228
  Receipt Date: 20220228
  Transmission Date: 20220423
  Serious: Yes (Hospitalization, Other)
  Sender: FDA-Public Use
  Company Number: US-CIPLA LTD.-2022US01121

PATIENT

DRUGS (1)
  1. ATORVASTATIN [Suspect]
     Active Substance: ATORVASTATIN
     Indication: Cerebrovascular accident
     Dosage: 20 MG, UNK
     Route: 065

REACTIONS (2)
  - Respiratory failure [Unknown]
  - Muscle necrosis [Unknown]

NARRATIVE: CASE EVENT DATE: 20200101
